FAERS Safety Report 7237748-X (Version None)
Quarter: 2011Q1

REPORT INFORMATION
  Report Type: 
  Country: None (occurrence: None)
  Receive Date: 20110121
  Receipt Date: 20110118
  Transmission Date: 20110831
  Serious: Yes (Death)
  Sender: FDA-Public Use
  Company Number: PHHY2011US01765

PATIENT
  Sex: Male
  Weight: 94 kg

DRUGS (7)
  1. EXJADE [Suspect]
     Indication: IRON OVERLOAD
     Dosage: 500 MG, QD
     Route: 048
     Dates: start: 20060705, end: 20101201
  2. DECITABINE [Concomitant]
     Dosage: UNK
     Dates: start: 20070101, end: 20100701
  3. NPLATE [Concomitant]
     Dosage: 750 MG WEEKLY
     Route: 058
     Dates: start: 20101114, end: 20101201
  4. FEXOFENADINE HCL [Concomitant]
     Dosage: 150 MG, QD
     Route: 048
     Dates: start: 20101201, end: 20101204
  5. ENALAPRIL [Concomitant]
     Dosage: 5 MG, QD
     Route: 048
     Dates: start: 20101201, end: 20101204
  6. FLOMAX [Concomitant]
     Dosage: UNK
     Route: 048
     Dates: start: 20101201, end: 20101204
  7. DEXAMETHMONE [Concomitant]
     Dosage: UNK
     Dates: start: 20101001

REACTIONS (7)
  - DISSEMINATED INTRAVASCULAR COAGULATION [None]
  - RESPIRATORY DISTRESS [None]
  - DYSPNOEA [None]
  - LOSS OF CONSCIOUSNESS [None]
  - ANAEMIA [None]
  - MULTI-ORGAN FAILURE [None]
  - ACUTE RESPIRATORY DISTRESS SYNDROME [None]
